FAERS Safety Report 4783553-3 (Version None)
Quarter: 2005Q3

REPORT INFORMATION
  Report Type: 
  Country: None (occurrence: None)
  Receive Date: 20050914
  Receipt Date: 20040804
  Transmission Date: 20060218
  Serious: Yes (Hospitalization)
  Sender: FDA-Public Use
  Company Number: 163-20785-04080152

PATIENT
  Age: 57 Year
  Sex: Male
  Weight: 60.782 kg

DRUGS (9)
  1. THALOMID [Suspect]
     Indication: GLIOBLASTOMA MULTIFORME
     Dosage: 150 MG, QHS, ORAL
     Route: 048
     Dates: start: 20040320, end: 20040616
  2. CELECOXIB (CELECOXIB) [Suspect]
     Indication: GLIOBLASTOMA MULTIFORME
     Dosage: 400 MG, BID, ORAL
     Route: 048
     Dates: start: 20040320, end: 20040617
  3. PREDNISONE [Concomitant]
  4. DECADRON [Concomitant]
  5. ETOPOSIDE [Suspect]
     Indication: GLIOBLASTOMA MULTIFORME
     Dosage: 50 DAYS, DAILY X 21 DAYS, ORAL
     Route: 048
     Dates: start: 20040320, end: 20040409
  6. ETOPOSIDE [Suspect]
     Indication: GLIOBLASTOMA MULTIFORME
     Dosage: 50 DAYS, DAILY X 21 DAYS, ORAL
     Route: 048
     Dates: start: 20040501, end: 20040521
  7. ETOPOSIDE [Suspect]
     Indication: GLIOBLASTOMA MULTIFORME
     Dosage: 50 DAYS, DAILY X 21 DAYS, ORAL
     Route: 048
     Dates: start: 20040612, end: 20040616
  8. CYCLOPHOSPHAMIDE [Suspect]
     Indication: GLIOBLASTOMA MULTIFORME
     Dosage: 100 MG, DAILY X 21 DAYS, ORAL
     Route: 048
     Dates: start: 20040410, end: 20040430
  9. CYCLOPHOSPHAMIDE [Suspect]
     Indication: GLIOBLASTOMA MULTIFORME
     Dosage: 100 MG, DAILY X 21 DAYS, ORAL
     Route: 048
     Dates: start: 20040522, end: 20040611

REACTIONS (1)
  - BRAIN OEDEMA [None]
